FAERS Safety Report 9807763 (Version 1)
Quarter: 2014Q1

REPORT INFORMATION
  Report Type: Spontaneous
  Country: FR (occurrence: FR)
  Receive Date: 20140110
  Receipt Date: 20140110
  Transmission Date: 20141002
  Serious: Yes (Disabling)
  Sender: FDA-Public Use
  Company Number: FR-ASTRAZENECA-2014SE00640

PATIENT
  Age: 0 Day
  Sex: Female

DRUGS (1)
  1. TENORMINE [Suspect]
     Indication: TACHYCARDIA
     Route: 064

REACTIONS (2)
  - Encephalopathy [Not Recovered/Not Resolved]
  - Mitochondrial encephalomyopathy [Not Recovered/Not Resolved]
